FAERS Safety Report 15211242 (Version 1)
Quarter: 2018Q3

REPORT INFORMATION
  Report Type: Spontaneous
  Country: US (occurrence: US)
  Receive Date: 20180701
  Receipt Date: 20180701
  Transmission Date: 20181010
  Serious: Yes (Hospitalization)
  Sender: FDA-Public Use
  Company Number: None

PATIENT
  Age: 25 Year
  Sex: Male
  Weight: 56 kg

DRUGS (1)
  1. TISAGENLECLEUCEL. [Suspect]
     Active Substance: TISAGENLECLEUCEL
     Indication: B-CELL TYPE ACUTE LEUKAEMIA
     Dosage: ?          OTHER FREQUENCY:ONCE;?
     Route: 042
     Dates: start: 20180531, end: 20180531

REACTIONS (9)
  - Serum ferritin increased [None]
  - Toxic encephalopathy [None]
  - Rhinovirus infection [None]
  - Bone pain [None]
  - Cytokine release syndrome [None]
  - C-reactive protein increased [None]
  - Febrile neutropenia [None]
  - Posterior reversible encephalopathy syndrome [None]
  - Blood pressure decreased [None]

NARRATIVE: CASE EVENT DATE: 20180603
